FAERS Safety Report 24225544 (Version 1)
Quarter: 2024Q3

REPORT INFORMATION
  Report Type: Spontaneous
  Country: US (occurrence: US)
  Receive Date: 20240820
  Receipt Date: 20240820
  Transmission Date: 20241016
  Serious: Yes (Other)
  Sender: STRIDES
  Company Number: US-STRIDES ARCOLAB LIMITED-2023SP017458

PATIENT
  Age: 24 Year
  Sex: Male

DRUGS (1)
  1. MEGESTROL ACETATE [Suspect]
     Active Substance: MEGESTROL ACETATE
     Indication: Muscle building therapy
     Dosage: UNK, SCHEDULED TO BE ADMINISTERED FOR 2 MONTHS, STRENGTH 625MG PER 5ML
     Route: 065

REACTIONS (4)
  - Hypothalamo-pituitary disorder [Unknown]
  - Intentional product misuse [Unknown]
  - Treatment noncompliance [Unknown]
  - Off label use [Unknown]
